FAERS Safety Report 8996769 (Version 1)
Quarter: 2012Q4

REPORT INFORMATION
  Report Type: Spontaneous
  Country: US (occurrence: None)
  Receive Date: 20121228
  Receipt Date: 20121228
  Transmission Date: 20130627
  Serious: Yes (Hospitalization)
  Sender: FDA-Public Use
  Company Number: None

PATIENT
  Age: 75 Year
  Sex: Male
  Weight: 93.9 kg

DRUGS (2)
  1. TOVIAZ [Suspect]
     Indication: URINARY URGENCY
     Dosage: 1  Daily
12-4  -  12-5
  2. TOVIAZ [Suspect]
     Indication: URINARY FREQUENCY
     Dosage: 1  Daily
12-4  -  12-5

REACTIONS (6)
  - Urinary retention [None]
  - Dry throat [None]
  - Dysphonia [None]
  - Constipation [None]
  - Abdominal pain upper [None]
  - Oropharyngeal pain [None]
